FAERS Safety Report 25357831 (Version 1)
Quarter: 2025Q2

REPORT INFORMATION
  Report Type: Spontaneous
  Country: HU (occurrence: HU)
  Receive Date: 20250526
  Receipt Date: 20250526
  Transmission Date: 20250717
  Serious: Yes (Other)
  Sender: ROCHE
  Company Number: HU-ROCHE-10000293159

PATIENT
  Sex: Female

DRUGS (1)
  1. TAMIFLU [Suspect]
     Active Substance: OSELTAMIVIR PHOSPHATE
     Indication: Influenza
     Route: 065

REACTIONS (6)
  - Panic attack [Unknown]
  - Insomnia [Unknown]
  - Sleep deficit [Unknown]
  - Seizure [Unknown]
  - Confusional state [Unknown]
  - Post-traumatic stress disorder [Unknown]
